FAERS Safety Report 22272540 (Version 1)
Quarter: 2023Q2

REPORT INFORMATION
  Report Type: Spontaneous
  Country: US (occurrence: US)
  Receive Date: 20230502
  Receipt Date: 20230502
  Transmission Date: 20230721
  Serious: No
  Sender: FDA-Public Use
  Company Number: US-LEO Pharma-351571

PATIENT
  Sex: Male

DRUGS (16)
  1. ADBRY [Suspect]
     Active Substance: TRALOKINUMAB-LDRM
     Indication: Dermatitis atopic
     Dosage: DOSAGE: 4 SYRINGES, 600 MG UNDER THE SKIN ON DAY 1
     Route: 058
     Dates: start: 20230406
  2. ADBRY [Suspect]
     Active Substance: TRALOKINUMAB-LDRM
     Indication: Dermatitis atopic
     Dosage: DOSAGE: 4 SYRINGES, 600 MG UNDER THE SKIN ON DAY 1
     Route: 058
     Dates: start: 20230406
  3. ADBRY [Suspect]
     Active Substance: TRALOKINUMAB-LDRM
     Indication: Dermatitis atopic
     Dosage: DOSAGE: 4 SYRINGES, 600 MG UNDER THE SKIN ON DAY 1
     Route: 058
     Dates: start: 20230406
  4. ADBRY [Suspect]
     Active Substance: TRALOKINUMAB-LDRM
     Indication: Dermatitis atopic
     Dosage: DOSAGE: 4 SYRINGES, 600 MG UNDER THE SKIN ON DAY 1
     Route: 058
     Dates: start: 20230406
  5. ADBRY [Suspect]
     Active Substance: TRALOKINUMAB-LDRM
     Indication: Dermatitis atopic
     Dosage: DOSAGE: 300 MG UNDER THE SKIN EVERY 2 WEEKS
     Route: 058
  6. ADBRY [Suspect]
     Active Substance: TRALOKINUMAB-LDRM
     Indication: Dermatitis atopic
     Dosage: DOSAGE: 300 MG UNDER THE SKIN EVERY 2 WEEKS
     Route: 058
  7. ADBRY [Suspect]
     Active Substance: TRALOKINUMAB-LDRM
     Indication: Dermatitis atopic
     Dosage: DOSAGE: 300 MG UNDER THE SKIN EVERY 2 WEEKS
     Route: 058
  8. ADBRY [Suspect]
     Active Substance: TRALOKINUMAB-LDRM
     Indication: Dermatitis atopic
     Dosage: DOSAGE: 300 MG UNDER THE SKIN EVERY 2 WEEKS
     Route: 058
  9. ADBRY [Suspect]
     Active Substance: TRALOKINUMAB-LDRM
     Indication: Dermatitis allergic
     Dosage: DOSAGE: 4 SYRINGES, 600 MG UNDER THE SKIN ON DAY 1
     Route: 058
     Dates: start: 20230406
  10. ADBRY [Suspect]
     Active Substance: TRALOKINUMAB-LDRM
     Indication: Dermatitis allergic
     Dosage: DOSAGE: 4 SYRINGES, 600 MG UNDER THE SKIN ON DAY 1
     Route: 058
     Dates: start: 20230406
  11. ADBRY [Suspect]
     Active Substance: TRALOKINUMAB-LDRM
     Indication: Dermatitis allergic
     Dosage: DOSAGE: 4 SYRINGES, 600 MG UNDER THE SKIN ON DAY 1
     Route: 058
     Dates: start: 20230406
  12. ADBRY [Suspect]
     Active Substance: TRALOKINUMAB-LDRM
     Indication: Dermatitis allergic
     Dosage: DOSAGE: 4 SYRINGES, 600 MG UNDER THE SKIN ON DAY 1
     Route: 058
     Dates: start: 20230406
  13. ADBRY [Suspect]
     Active Substance: TRALOKINUMAB-LDRM
     Indication: Dermatitis allergic
     Dosage: DOSAGE: 300 MG UNDER THE SKIN EVERY 2 WEEKS
     Route: 058
  14. ADBRY [Suspect]
     Active Substance: TRALOKINUMAB-LDRM
     Indication: Dermatitis allergic
     Dosage: DOSAGE: 300 MG UNDER THE SKIN EVERY 2 WEEKS
     Route: 058
  15. ADBRY [Suspect]
     Active Substance: TRALOKINUMAB-LDRM
     Indication: Dermatitis allergic
     Dosage: DOSAGE: 300 MG UNDER THE SKIN EVERY 2 WEEKS
     Route: 058
  16. ADBRY [Suspect]
     Active Substance: TRALOKINUMAB-LDRM
     Indication: Dermatitis allergic
     Dosage: DOSAGE: 300 MG UNDER THE SKIN EVERY 2 WEEKS
     Route: 058

REACTIONS (1)
  - Pruritus [Unknown]
